FAERS Safety Report 11460373 (Version 2)
Quarter: 2015Q3

REPORT INFORMATION
  Report Type: Spontaneous
  Country: RU (occurrence: RU)
  Receive Date: 20150904
  Receipt Date: 20150911
  Transmission Date: 20151125
  Serious: Yes (Other)
  Sender: FDA-Public Use
  Company Number: RU-BAXTER-2015BAX048268

PATIENT
  Sex: Female

DRUGS (1)
  1. SEVOFLURAN [Suspect]
     Active Substance: SEVOFLURANE
     Indication: LAPAROSCOPIC SURGERY
     Route: 065

REACTIONS (1)
  - Delayed recovery from anaesthesia [Recovered/Resolved]
